FAERS Safety Report 17040835 (Version 1)
Quarter: 2019Q4

REPORT INFORMATION
  Report Type: Spontaneous
  Country: DE (occurrence: DE)
  Receive Date: 20191118
  Receipt Date: 20191118
  Transmission Date: 20200122
  Serious: Yes (Hospitalization, Congenital Anomaly, Other)
  Sender: FDA-Public Use
  Company Number: DE-AUROBINDO-AUR-APL-2019-072723

PATIENT
  Sex: Female

DRUGS (13)
  1. QUETIAPINE. [Suspect]
     Active Substance: QUETIAPINE
     Indication: BIPOLAR DISORDER
     Dosage: 200 MILLIGRAM, ONCE A DAY
     Route: 064
  2. ERGENYL CHRONO [Suspect]
     Active Substance: VALPROIC ACID
     Indication: PRODUCT USED FOR UNKNOWN INDICATION
     Dosage: UNK
     Route: 064
     Dates: start: 201311, end: 20140725
  3. VALPROATE SODIUM. [Suspect]
     Active Substance: VALPROATE SODIUM
     Indication: BIPOLAR I DISORDER
     Dosage: UNK
     Route: 064
     Dates: start: 201311, end: 20140725
  4. PANTOPRAZOLE [Concomitant]
     Active Substance: PANTOPRAZOLE
     Indication: PRODUCT USED FOR UNKNOWN INDICATION
     Dosage: 20 MILLIGRAM, ONCE A DAY
     Route: 065
  5. MACROGOL [Concomitant]
     Active Substance: POLYETHYLENE GLYCOLS
     Indication: CONSTIPATION
     Dosage: 1 DOSAGE FORM, ONCE A DAY
     Route: 065
  6. L-THYROXIN [Concomitant]
     Active Substance: LEVOTHYROXINE SODIUM
     Indication: PRODUCT USED FOR UNKNOWN INDICATION
     Dosage: 50 MICROGRAM, ONCE A DAY
     Route: 065
  7. NOVORAPID [Concomitant]
     Active Substance: INSULIN ASPART
     Indication: GESTATIONAL DIABETES
     Dosage: 5.5 INTERNATIONAL UNIT, ONCE A DAY (THROUGHOUT THE DAY)
     Route: 064
     Dates: start: 2014
  8. DICLOFENAC [Concomitant]
     Active Substance: DICLOFENAC
     Indication: SCIATICA
     Dosage: 75 MILLIGRAM, ONCE A DAY 9FOR LUMBOISCHIALGIA FOR ANOTHER 7 DA)
     Route: 065
  9. VALPROATE SODIUM. [Suspect]
     Active Substance: VALPROATE SODIUM
     Indication: EPILEPSY
     Dosage: 1300 ? 2500 MG DAILY
     Route: 064
  10. QUETIAPINE. [Suspect]
     Active Substance: QUETIAPINE
     Dosage: 50 MILLIGRAM, ONCE A DAY
     Route: 064
  11. LITHIUM. [Suspect]
     Active Substance: LITHIUM
     Indication: BIPOLAR DISORDER
     Dosage: 900 MILLIGRAM, ONCE A DAY
     Route: 064
  12. LITHIUM. [Suspect]
     Active Substance: LITHIUM
     Dosage: 2250 MILLIGRAM, ONCE A DAY
     Route: 064
  13. PROTAPHANE [Concomitant]
     Active Substance: INSULIN HUMAN
     Indication: GESTATIONAL DIABETES
     Dosage: 6 INTERNATIONAL UNIT, ONCE A DAY (AT NIGHT)
     Route: 064
     Dates: start: 2014

REACTIONS (27)
  - Bronchitis [Unknown]
  - Late metabolic acidosis of newborn [Unknown]
  - Congenital foot malformation [Unknown]
  - Atrial septal defect [Recovered/Resolved]
  - Autism spectrum disorder [Unknown]
  - Ear infection [Unknown]
  - Foetal anticonvulsant syndrome [Not Recovered/Not Resolved]
  - Congenital eyelid malformation [Unknown]
  - Muscle twitching [Unknown]
  - Muscle tone disorder [Not Recovered/Not Resolved]
  - Sensory disturbance [Not Recovered/Not Resolved]
  - Toxicity to various agents [Unknown]
  - Ventricular septal defect [Recovered/Resolved]
  - Mitral valve incompetence [Recovered/Resolved]
  - Mental disability [Not Recovered/Not Resolved]
  - Gross motor delay [Not Recovered/Not Resolved]
  - Movement disorder [Recovering/Resolving]
  - Foetal exposure during pregnancy [Unknown]
  - Developmental delay [Recovering/Resolving]
  - Sensory integrative dysfunction [Not Recovered/Not Resolved]
  - Adjustment disorder [Unknown]
  - Neonatal respiratory acidosis [Unknown]
  - Congenital hand malformation [Unknown]
  - Speech disorder [Recovering/Resolving]
  - Congenital nose malformation [Unknown]
  - Hypokinesia [Not Recovered/Not Resolved]
  - Accidental exposure to product by child [Unknown]

NARRATIVE: CASE EVENT DATE: 20140725
